FAERS Safety Report 8496570-7 (Version None)
Quarter: 2012Q3

REPORT INFORMATION
  Report Type: 
  Country: None (occurrence: None)
  Receive Date: 20120709
  Receipt Date: 20120627
  Transmission Date: 20120928
  Serious: No
  Sender: FDA-Public Use
  Company Number: US-ASTRAZENECA-2012SE43545

PATIENT
  Age: 37 Year
  Sex: Female
  Weight: 88.5 kg

DRUGS (3)
  1. OMEPRAZOLE [Suspect]
     Indication: DYSPEPSIA
     Dosage: ONCE A DAY
     Route: 048
     Dates: start: 20020101
  2. HYDROCODONE [Concomitant]
     Indication: PAIN
  3. OMEPRAZOLE [Suspect]
     Indication: GASTRIC ULCER
     Dosage: ONCE A DAY
     Route: 048
     Dates: start: 20020101

REACTIONS (3)
  - BACK INJURY [None]
  - BACK PAIN [None]
  - HAIR DISORDER [None]
